FAERS Safety Report 9321390 (Version 3)
Quarter: 2013Q3

REPORT INFORMATION
  Report Type: Spontaneous
  Country: DE (occurrence: CA)
  Receive Date: 20130531
  Receipt Date: 20130827
  Transmission Date: 20140515
  Serious: Yes (Hospitalization, Other)
  Sender: FDA-Public Use
  Company Number: CA-FRI-1000045499

PATIENT
  Age: 62 Year
  Sex: Female
  Weight: 41 kg

DRUGS (7)
  1. ROFLUMILAST [Suspect]
     Indication: CHRONIC OBSTRUCTIVE PULMONARY DISEASE
     Dosage: 250 MCG
     Route: 048
     Dates: start: 20130319
  2. VANCOCIN [Concomitant]
  3. ADVAIR [Concomitant]
  4. PREDNISONE [Concomitant]
  5. CIPRO [Concomitant]
  6. ATROVENT [Concomitant]
  7. OXYGEN [Concomitant]

REACTIONS (3)
  - Chronic obstructive pulmonary disease [Recovered/Resolved]
  - Lower respiratory tract infection [Recovered/Resolved]
  - Medication error [Unknown]
